FAERS Safety Report 13934443 (Version 1)
Quarter: 2017Q3

REPORT INFORMATION
  Report Type: Spontaneous
  Country: US (occurrence: US)
  Receive Date: 20170905
  Receipt Date: 20170905
  Transmission Date: 20171127
  Serious: No
  Sender: FDA-Public Use
  Company Number: US-TEVA-707381USA

PATIENT
  Age: 56 Year
  Sex: Female
  Weight: 86.26 kg

DRUGS (5)
  1. TUMS [Concomitant]
     Active Substance: CALCIUM CARBONATE
  2. TRAMADOL. [Suspect]
     Active Substance: TRAMADOL
     Indication: PAIN
     Dosage: 1-2 TABLETSD 4 TIMES DAILY AS NEEDED
     Route: 048
     Dates: start: 20160916, end: 20160919
  3. DICLOFENAC [Suspect]
     Active Substance: DICLOFENAC
     Indication: ARTHRALGIA
     Dosage: 150 MILLIGRAM DAILY;
     Route: 048
     Dates: start: 20160916, end: 20160918
  4. DICLOFENAC [Suspect]
     Active Substance: DICLOFENAC
     Indication: BACK PAIN
  5. HYDROCODONE [Concomitant]
     Active Substance: HYDROCODONE
     Indication: PAIN
     Dosage: 10/325

REACTIONS (6)
  - Abdominal pain upper [Not Recovered/Not Resolved]
  - Anger [Unknown]
  - Agitation [Unknown]
  - Drug ineffective [Unknown]
  - Crying [Unknown]
  - Sensation of foreign body [Unknown]

NARRATIVE: CASE EVENT DATE: 20160916
